FAERS Safety Report 9698339 (Version 2)
Quarter: 2013Q4

REPORT INFORMATION
  Report Type: Spontaneous
  Country: IT (occurrence: IT)
  Receive Date: 20131120
  Receipt Date: 20131212
  Transmission Date: 20140711
  Serious: Yes (Death, Hospitalization)
  Sender: FDA-Public Use
  Company Number: IT-JNJFOC-20131109471

PATIENT
  Sex: Female

DRUGS (2)
  1. YONDELIS [Suspect]
     Indication: OVARIAN CANCER
     Route: 042
  2. CAELYX [Suspect]
     Indication: OVARIAN CANCER
     Route: 042

REACTIONS (2)
  - Ovarian cancer metastatic [Fatal]
  - Adverse event [Unknown]
